FAERS Safety Report 20662308 (Version 1)
Quarter: 2022Q2

REPORT INFORMATION
  Report Type: Spontaneous
  Country: US (occurrence: US)
  Receive Date: 20220401
  Receipt Date: 20220401
  Transmission Date: 20220721
  Serious: Yes (Other)
  Sender: FDA-Public Use
  Company Number: US-009507513-2203USA007904

PATIENT
  Sex: Female

DRUGS (6)
  1. TEMODAR [Suspect]
     Active Substance: TEMOZOLOMIDE
     Dosage: DOSE/STRENGTH: 0.0125 MG/KG/DAY
  2. TRAMETINIB [Suspect]
     Active Substance: TRAMETINIB
     Indication: Astrocytoma
  3. VINCRISTINE [Suspect]
     Active Substance: VINCRISTINE
  4. CARBOPLATIN [Suspect]
     Active Substance: CARBOPLATIN
  5. AVASTIN [Suspect]
     Active Substance: BEVACIZUMAB
  6. IRINOTECAN [Suspect]
     Active Substance: IRINOTECAN

REACTIONS (2)
  - Astrocytoma [Unknown]
  - Malignant neoplasm progression [Unknown]
